FAERS Safety Report 25463643 (Version 3)
Quarter: 2025Q3

REPORT INFORMATION
  Report Type: Report from Study
  Country: CA (occurrence: CA)
  Receive Date: 20250620
  Receipt Date: 20250718
  Transmission Date: 20251021
  Serious: Yes (Death, Hospitalization, Other)
  Sender: HLS THERAPEUTICS
  Company Number: CA-HLS-202501487

PATIENT
  Age: 49 Year
  Sex: Female

DRUGS (6)
  1. CLOZARIL [Suspect]
     Active Substance: CLOZAPINE
     Indication: Product used for unknown indication
     Route: 048
     Dates: start: 19990917
  2. FERROUS FUMARATE [Concomitant]
     Active Substance: FERROUS FUMARATE
     Indication: Product used for unknown indication
     Route: 048
  3. AMLODIPINE [Concomitant]
     Active Substance: AMLODIPINE BESYLATE
     Indication: Product used for unknown indication
     Route: 048
  4. APIXABAN [Concomitant]
     Active Substance: APIXABAN
     Indication: Product used for unknown indication
     Dosage: 2.5 MG BY MOUTH TWICE DAILY
     Route: 048
  5. Venalfaxine [Concomitant]
     Indication: Product used for unknown indication
     Dosage: 225 MG BY MOUTH DAILY
     Route: 048
  6. DIVALPROEX SODIUM [Concomitant]
     Active Substance: DIVALPROEX SODIUM
     Indication: Product used for unknown indication
     Dosage: 750 MG AT BEDTIME
     Route: 048

REACTIONS (15)
  - Generalised oedema [Fatal]
  - Sepsis [Fatal]
  - Breast cancer [Fatal]
  - Fall [Fatal]
  - Gastrointestinal haemorrhage [Fatal]
  - Endocarditis [Fatal]
  - Asthenia [Fatal]
  - Ovarian cyst [Fatal]
  - Portal vein thrombosis [Fatal]
  - Renal failure [Fatal]
  - Hypoxia [Fatal]
  - Shock [Fatal]
  - Dyspnoea [Fatal]
  - Visceral venous thrombosis [Fatal]
  - Thrombocytopenia [Fatal]
